FAERS Safety Report 9165389 (Version 1)
Quarter: 2013Q1

REPORT INFORMATION
  Report Type: Spontaneous
  Country: US (occurrence: None)
  Receive Date: 20130314
  Receipt Date: 20130314
  Transmission Date: 20140127
  Serious: Yes (Other)
  Sender: FDA-Public Use
  Company Number: None

PATIENT
  Sex: Male

DRUGS (1)
  1. FORTEO 20 MEQ LILLY [Suspect]
     Indication: OSTEOPOROSIS
     Dosage: 12/28/13-APROX 2/28/13
     Dates: end: 20130228

REACTIONS (1)
  - Chest pain [None]
